FAERS Safety Report 4836036-6 (Version None)
Quarter: 2005Q4

REPORT INFORMATION
  Report Type: 
  Country: None (occurrence: None)
  Receive Date: 20051123
  Receipt Date: 20051110
  Transmission Date: 20060501
  Serious: Yes (Hospitalization)
  Sender: FDA-Public Use
  Company Number: HQWYE556715NOV05

PATIENT
  Sex: Female

DRUGS (10)
  1. ENBREL [Suspect]
     Indication: RHEUMATOID ARTHRITIS
     Route: 058
     Dates: start: 20050621, end: 20051107
  2. CALCIUM CARBONATE [Concomitant]
     Dosage: DOSE AND FREQUENCY NOT SPECIFIED
  3. ROCALTROL [Concomitant]
     Dosage: DOSE AND FREQUENCY NOT SPECIFIED
  4. KAYEXALATE [Concomitant]
     Dosage: DOSE AND FREQUENCY NOT SPECIFIED
  5. MUCOSTA [Concomitant]
     Dosage: DOSE AND FREQUENCY NOT SPECIFIED
  6. SELBEX [Concomitant]
     Dosage: DOSE AND FREQUENCY NOT SPECIFIED
  7. ASPARA-CA [Concomitant]
     Dosage: DOSE AND FREQUENCY NOT SPECIFIED
  8. LANSOPRAZOLE [Concomitant]
     Dosage: DOSE AND FREQUENCY NOT SPECIFIED
  9. PRIMPERAN INJ [Concomitant]
     Dosage: DOSE AND FREQUENCY NOT SPECIFIED
  10. RISUMIC [Concomitant]

REACTIONS (1)
  - ECZEMA [None]
